FAERS Safety Report 7850091 (Version 2)
Quarter: 2015Q1

REPORT INFORMATION
  Report Type: Spontaneous
  Country: US (occurrence: US)
  Receive Date: 20110310
  Receipt Date: 20150216
  Transmission Date: 20150721
  Serious: Yes (Other)
  Sender: FDA-Public Use
  Company Number: US-ROCHE-744018

PATIENT
  Age: 18 Year
  Sex: Male

DRUGS (3)
  1. ACCUTANE [Suspect]
     Active Substance: ISOTRETINOIN
     Indication: PRODUCT USED FOR UNKNOWN INDICATION
     Route: 065
     Dates: start: 200804, end: 200810
  2. CLARITIN [Concomitant]
     Active Substance: LORATADINE
     Indication: HYPERSENSITIVITY
  3. ACCUTANE [Suspect]
     Active Substance: ISOTRETINOIN
     Route: 065

REACTIONS (8)
  - Emotional distress [Unknown]
  - Cheilitis [Unknown]
  - Inflammatory bowel disease [Unknown]
  - Blood triglycerides increased [Unknown]
  - Xerosis [Unknown]
  - Irritable bowel syndrome [Unknown]
  - Lip dry [Unknown]
  - Dry skin [Unknown]

NARRATIVE: CASE EVENT DATE: 200906
